FAERS Safety Report 22145441 (Version 1)
Quarter: 2023Q1

REPORT INFORMATION
  Report Type: Spontaneous
  Country: PR (occurrence: US)
  Receive Date: 20230328
  Receipt Date: 20230328
  Transmission Date: 20230417
  Serious: No
  Sender: FDA-Public Use
  Company Number: PR-GLAXOSMITHKLINE-PRCH2023012861

PATIENT
  Sex: Male

DRUGS (1)
  1. VOLTAREN ARTHRITIS PAIN [Suspect]
     Active Substance: DICLOFENAC SODIUM
     Indication: Arthritis
     Dosage: UNK

REACTIONS (1)
  - Drug ineffective [Unknown]
